FAERS Safety Report 17299077 (Version 4)
Quarter: 2022Q4

REPORT INFORMATION
  Report Type: Spontaneous
  Country: JP (occurrence: JP)
  Receive Date: 20200121
  Receipt Date: 20221115
  Transmission Date: 20230112
  Serious: Yes (Other)
  Sender: FDA-Public Use
  Company Number: None

PATIENT
  Age: 11 Year
  Sex: Female

DRUGS (2)
  1. AFINITOR [Suspect]
     Active Substance: EVEROLIMUS
     Indication: Osteosarcoma metastatic
     Dosage: 2.5 MG/M2, QD
     Route: 065
  2. NEXAVAR [Suspect]
     Active Substance: SORAFENIB
     Indication: Osteosarcoma metastatic
     Dosage: 400 MG/M2, QD
     Route: 065

REACTIONS (2)
  - Pneumothorax [Recovering/Resolving]
  - Product use in unapproved indication [Unknown]
